FAERS Safety Report 12253176 (Version 1)
Quarter: 2016Q2

REPORT INFORMATION
  Report Type: Spontaneous
  Country: US (occurrence: None)
  Receive Date: 20160408
  Receipt Date: 20160408
  Transmission Date: 20160815
  Serious: No
  Sender: FDA-Public Use
  Company Number: None

PATIENT
  Age: 76 Year
  Sex: Female
  Weight: 70.31 kg

DRUGS (6)
  1. ELIQUIS [Suspect]
     Active Substance: APIXABAN
     Indication: ANTICOAGULANT THERAPY
     Dosage: 1 X 2 DAILY MOUTH
     Route: 048
     Dates: start: 20160322, end: 20160323
  2. DILTIAZ ER (XR) [Concomitant]
     Active Substance: DILTIAZEM HYDROCHLORIDE
  3. TYLENOL [Concomitant]
     Active Substance: ACETAMINOPHEN
  4. ATENOLOL. [Concomitant]
     Active Substance: ATENOLOL
  5. XARELTO [Concomitant]
     Active Substance: RIVAROXABAN
  6. ELIQUIS [Suspect]
     Active Substance: APIXABAN
     Indication: ATRIAL FIBRILLATION
     Dosage: 1 X 2 DAILY MOUTH
     Route: 048
     Dates: start: 20160322, end: 20160323

REACTIONS (5)
  - Disorientation [None]
  - Fatigue [None]
  - Headache [None]
  - Muscle spasms [None]
  - Dizziness [None]

NARRATIVE: CASE EVENT DATE: 20160322
